FAERS Safety Report 8204682-8 (Version None)
Quarter: 2012Q1

REPORT INFORMATION
  Report Type: 
  Country: None (occurrence: None)
  Receive Date: 20120313
  Receipt Date: 20120308
  Transmission Date: 20120608
  Serious: Yes (Hospitalization)
  Sender: FDA-Public Use
  Company Number: FR-PFIZER INC-2009217830

PATIENT
  Age: 68 Year
  Sex: Male

DRUGS (11)
  1. ATORVASTATIN [Suspect]
     Dosage: 1 DF, 1X/DAY
     Route: 048
  2. OMEPRAZOLE [Suspect]
     Dosage: 1 DF, 1X/DAY
     Route: 048
     Dates: start: 20081205, end: 20081219
  3. PANTOPRAZOLE SODIUM [Suspect]
     Dosage: UNK
     Dates: start: 20081118, end: 20081205
  4. TRAMADOL HCL [Concomitant]
     Dosage: UNK
     Dates: start: 20081201, end: 20081205
  5. PHENYTOIN SODIUM [Suspect]
  6. ALFUZOSIN HCL [Concomitant]
     Dosage: 1 DF, 1X/DAY
  7. NIMOTOP [Suspect]
     Route: 048
  8. LOVENOX [Suspect]
     Dosage: 1 DF, 1X/DAY
     Route: 058
     Dates: start: 20081107, end: 20081219
  9. POLARAMINE [Concomitant]
     Dosage: UNK
  10. PARACETAMOL [Concomitant]
     Dosage: UNK
     Dates: start: 20081118, end: 20081205
  11. XYZAL [Concomitant]
     Dosage: 1 DF, 1X/DAY

REACTIONS (1)
  - DRUG RASH WITH EOSINOPHILIA AND SYSTEMIC SYMPTOMS [None]
